FAERS Safety Report 8299801 (Version 2)
Quarter: 2013Q2

REPORT INFORMATION
  Report Type: Spontaneous
  Country: US (occurrence: US)
  Receive Date: 20111219
  Receipt Date: 20130422
  Transmission Date: 20140414
  Serious: Yes (Other)
  Sender: FDA-Public Use
  Company Number: US-ROCHE-1022864

PATIENT
  Sex: Male

DRUGS (1)
  1. ACCUTANE [Suspect]
     Indication: PRODUCT USED FOR UNKNOWN INDICATION
     Dosage: INGESTED FOR A CERTAIN PERIOD OF TIME BEGINNING IN THE EARLY 1990 S
     Route: 065

REACTIONS (5)
  - Inflammatory bowel disease [Unknown]
  - Fibromyalgia [Unknown]
  - Emotional distress [Unknown]
  - Suicidal ideation [Unknown]
  - Irritable bowel syndrome [Unknown]
